FAERS Safety Report 7027262-9 (Version None)
Quarter: 2010Q4

REPORT INFORMATION
  Report Type: 
  Country: None (occurrence: None)
  Receive Date: 20101004
  Receipt Date: 20100930
  Transmission Date: 20110411
  Serious: Yes (Other)
  Sender: FDA-Public Use
  Company Number: CHPA2010US15433

PATIENT
  Age: 63 Year
  Sex: Male

DRUGS (9)
  1. CONTROL PLP (NCH) [Suspect]
     Indication: SMOKING CESSATION THERAPY
     Dosage: 21 MG, QD
     Route: 062
  2. CONTROL PLP (NCH) [Suspect]
     Indication: TOBACCO USER
     Dosage: 21 MG, QD
     Route: 062
  3. CONTROL PLP (NCH) [Suspect]
     Dosage: 21 MG, QD
     Route: 062
  4. PRIVATE LABEL (NCH) [Suspect]
     Dosage: 14 MG, QD
     Route: 062
  5. PRIVATE LABEL (NCH) [Suspect]
     Dosage: 7 MG, QD
     Route: 062
  6. PRIVATE LABEL (NCH) [Suspect]
     Dosage: 14 MG, QD
     Route: 062
  7. PRIVATE LABEL (NCH) [Suspect]
     Dosage: 7 MG, QD
     Route: 062
  8. PRIVATE LABEL (NCH) [Suspect]
     Dosage: 14 MG, QD
     Route: 062
  9. PRIVATE LABEL (NCH) [Suspect]
     Dosage: 7 MG, QD
     Route: 062

REACTIONS (8)
  - ATRIOVENTRICULAR BLOCK [None]
  - CHEST PAIN [None]
  - CORONARY ARTERY DISEASE [None]
  - INAPPROPRIATE SCHEDULE OF DRUG ADMINISTRATION [None]
  - OFF LABEL USE [None]
  - OVERDOSE [None]
  - STENT PLACEMENT [None]
  - TREATMENT NONCOMPLIANCE [None]
